FAERS Safety Report 9782645 (Version 1)
Quarter: 2013Q4

REPORT INFORMATION
  Report Type: Spontaneous
  Country: FR (occurrence: None)
  Receive Date: 20131220
  Receipt Date: 20131220
  Transmission Date: 20140711
  Serious: Yes (Hospitalization)
  Sender: FDA-Public Use
  Company Number: 1944553

PATIENT
  Age: 51 Year
  Sex: Female

DRUGS (4)
  1. (CARBOPLATIN) [Suspect]
     Indication: PRODUCT USED FOR UNKNOWN INDICATION
     Dosage: 350 MG  MILLIGRAM (S) , UNKNOWN, INTRAVENOUS
     Route: 042
     Dates: start: 20120222, end: 20120222
  2. (GEMCITABINE HYDROCHLORIDE) [Suspect]
     Indication: PRODUCT USED FOR UNKNOWN INDICATION
     Dosage: 1220 MG MILLIGRAM (S), UNKNOWN, INTRAVENOUS
     Route: 042
     Dates: start: 20120222, end: 20120222
  3. ONDANSETRON [Suspect]
     Indication: PREMEDICATION
     Dosage: UNKNOWN, UNKNOWN , INTRAVENOUS (NOT SPECIFIED)
     Route: 042
     Dates: start: 20120222, end: 20120222
  4. METHYLPREDNISOLONE [Suspect]
     Indication: PREMEDICATION
     Dosage: UNKNOWN , UNKNOWN , INTRAVENOUS (NOT SPECIFIED)
     Route: 042
     Dates: start: 20120222, end: 20120222

REACTIONS (5)
  - Chills [None]
  - Generalised erythema [None]
  - Dyspnoea [None]
  - Vomiting [None]
  - Systolic hypertension [None]
